FAERS Safety Report 6194280-2 (Version None)
Quarter: 2009Q2

REPORT INFORMATION
  Report Type: 
  Country: None (occurrence: None)
  Receive Date: 20090519
  Receipt Date: 20090506
  Transmission Date: 20091009
  Serious: Yes (Life-Threatening, Hospitalization, Disabling, Other)
  Sender: FDA-Public Use
  Company Number: GB-RANBAXY-2009RR-24114

PATIENT
  Age: 64 Year
  Sex: Female

DRUGS (11)
  1. CLARITHROMYCIN [Suspect]
     Indication: RESPIRATORY TRACT INFECTION BACTERIAL
     Dosage: 500 MG, BID
     Route: 048
  2. ALFACALCIDOL [Concomitant]
  3. AMOXICILLIN [Concomitant]
  4. ARANESP [Concomitant]
  5. ASPIRIN [Concomitant]
  6. CALCICHEW [Concomitant]
  7. FOLIC ACID [Concomitant]
  8. KETOVITE [Concomitant]
  9. LANSOPRAZOLE [Concomitant]
  10. SERETIDE [Concomitant]
  11. TIOTROPIUM BROMIDE MONOHYDRATE [Concomitant]

REACTIONS (3)
  - CARDIAC ARREST [None]
  - INCORRECT DOSE ADMINISTERED [None]
  - VENTRICULAR TACHYCARDIA [None]
